FAERS Safety Report 17724216 (Version 1)
Quarter: 2020Q2

REPORT INFORMATION
  Report Type: Spontaneous
  Country: CO (occurrence: CO)
  Receive Date: 20200429
  Receipt Date: 20200429
  Transmission Date: 20200714
  Serious: Yes (Hospitalization)
  Sender: FDA-Public Use
  Company Number: CO-INCYTE CORPORATION-2017IN011528

PATIENT

DRUGS (1)
  1. JAKAVI [Suspect]
     Active Substance: RUXOLITINIB
     Indication: MYELOFIBROSIS
     Dosage: 20 MG (HALF TABLET OF 20MG IN THE MORNING AND HALF IN THE AFTERNOON.)
     Route: 065

REACTIONS (3)
  - Wrong technique in product usage process [Unknown]
  - Pleural effusion [Unknown]
  - Pneumonia [Unknown]
